FAERS Safety Report 11686145 (Version 2)
Quarter: 2015Q4

REPORT INFORMATION
  Report Type: Report from Study
  Country: JP (occurrence: JP)
  Receive Date: 20151030
  Receipt Date: 20151127
  Transmission Date: 20160304
  Serious: Yes (Death, Other)
  Sender: FDA-Public Use
  Company Number: PHJP2015JP013478

PATIENT
  Age: 81 Year
  Sex: Male

DRUGS (2)
  1. CHLORMADINONE ACETATE [Concomitant]
     Active Substance: CHLORMADINONE ACETATE
     Indication: PROSTATE CANCER
     Dosage: 50 MG, BID
     Route: 048
     Dates: start: 201309
  2. EXELON PATCH [Suspect]
     Active Substance: RIVASTIGMINE
     Indication: DEMENTIA ALZHEIMER^S TYPE
     Dosage: 1.9 MG, QD (PATCH 2.5 CM2/ 4.5 MG)
     Route: 062
     Dates: start: 20131115

REACTIONS (3)
  - Delirium [Not Recovered/Not Resolved]
  - Pulmonary embolism [Fatal]
  - Cardio-respiratory arrest [Fatal]

NARRATIVE: CASE EVENT DATE: 20131213
